FAERS Safety Report 20166447 (Version 1)
Quarter: 2021Q4

REPORT INFORMATION
  Report Type: Spontaneous
  Country: US (occurrence: US)
  Receive Date: 20211209
  Receipt Date: 20211209
  Transmission Date: 20220303
  Serious: Yes (Hospitalization)
  Sender: FDA-Public Use
  Company Number: US-TEVA-2021-US-1984966

PATIENT
  Age: 6 Decade
  Sex: Female

DRUGS (3)
  1. PANTOPRAZOLE [Suspect]
     Active Substance: PANTOPRAZOLE
     Indication: Product used for unknown indication
     Route: 065
  2. NIVOLUMAB [Suspect]
     Active Substance: NIVOLUMAB
     Indication: Uveal melanoma
     Dosage: RECEIVED TWO COURSES
     Route: 050
  3. IPILIMUMAB [Suspect]
     Active Substance: IPILIMUMAB
     Indication: Uveal melanoma
     Dosage: RECEIVED TWO COURSES
     Route: 050

REACTIONS (4)
  - Hepatitis [Unknown]
  - Henoch-Schonlein purpura [Recovering/Resolving]
  - Renal vasculitis [Recovering/Resolving]
  - Cutaneous vasculitis [Unknown]
